FAERS Safety Report 11677808 (Version 1)
Quarter: 2015Q4

REPORT INFORMATION
  Report Type: Spontaneous
  Country: US (occurrence: US)
  Receive Date: 20151027
  Receipt Date: 20151027
  Transmission Date: 20160304
  Serious: No
  Sender: FDA-Public Use
  Company Number: US-ELI_LILLY_AND_COMPANY-US201010002682

PATIENT
  Sex: Female

DRUGS (1)
  1. FORTEO [Suspect]
     Active Substance: TERIPARATIDE
     Indication: OSTEOPOROSIS
     Dosage: 20 UG, DAILY (1/D)
     Route: 065
     Dates: start: 201009

REACTIONS (6)
  - Vascular injury [Unknown]
  - Injection site bruising [Recovering/Resolving]
  - Movement disorder [Unknown]
  - Dizziness [Unknown]
  - Muscle spasms [Unknown]
  - Injection site swelling [Unknown]
